FAERS Safety Report 15003482 (Version 2)
Quarter: 2018Q2

REPORT INFORMATION
  Report Type: Spontaneous
  Country: JP (occurrence: JP)
  Receive Date: 20180613
  Receipt Date: 20180629
  Transmission Date: 20180711
  Serious: Yes (Other)
  Sender: FDA-Public Use
  Company Number: JP-ROCHE-2131803

PATIENT
  Age: 63 Year
  Sex: Female
  Weight: 46 kg

DRUGS (5)
  1. HERCEPTIN [Suspect]
     Active Substance: TRASTUZUMAB
     Indication: BREAST CANCER
     Dosage: ON A CYCLE OF ONCE EVERY 3 WEEKS
     Route: 041
     Dates: start: 20180227
  2. CRAVIT [Suspect]
     Active Substance: LEVOFLOXACIN
     Dosage: DOSE INTERVAL UNCERTAINTY
     Route: 048
     Dates: start: 20180503, end: 20180516
  3. HUSCODE [Concomitant]
     Active Substance: CHLORPHENIRAMINE MALEAT\DIHYDROCODEINE PHOSPHATE\METHYLEPHEDRINE HYDROCHLORIDE, DL-
     Dosage: DOSAGE IS UNCERTAIN.
     Route: 065
     Dates: start: 20180502, end: 20180530
  4. CRAVIT [Suspect]
     Active Substance: LEVOFLOXACIN
     Indication: PRODUCT USED FOR UNKNOWN INDICATION
     Dosage: DOSE INTERVAL UNCERTAINTY
     Route: 041
     Dates: start: 20180502, end: 20180502
  5. RELVAR [Concomitant]
     Active Substance: FLUTICASONE FUROATE\VILANTEROL TRIFENATATE
     Dosage: DOSAGE IS UNCERTAIN.
     Route: 065

REACTIONS (2)
  - Infection [Unknown]
  - Eosinophilic pneumonia [Recovering/Resolving]

NARRATIVE: CASE EVENT DATE: 201805
